FAERS Safety Report 8571323-X (Version None)
Quarter: 2012Q3

REPORT INFORMATION
  Report Type: 
  Country: None (occurrence: None)
  Receive Date: 20120806
  Receipt Date: 20120730
  Transmission Date: 20120928
  Serious: No
  Sender: FDA-Public Use
  Company Number: US-PFIZER INC-2012176277

PATIENT
  Age: 88 Year
  Sex: Female
  Weight: 56.689 kg

DRUGS (19)
  1. LYRICA [Suspect]
     Indication: OSTEOARTHRITIS
     Dosage: 50 MG, DAILY
     Route: 048
     Dates: start: 20120718
  2. SINGULAIR [Concomitant]
     Indication: ASTHMA
     Dosage: UNK, DAILY
  3. SINGULAIR [Concomitant]
     Indication: HYPERSENSITIVITY
  4. ASPIRIN [Concomitant]
     Dosage: 81 MG, 1X/DAY
  5. VITAMIN B-12 [Concomitant]
     Dosage: UNK, 1X/DAY
  6. LUTEIN [Concomitant]
  7. LYRICA [Suspect]
     Dosage: 50 MG, 2X/DAY
     Route: 048
     Dates: start: 20120701
  8. NAPROXEN (ALEVE) [Concomitant]
     Indication: INFLAMMATION
     Dosage: UNK, AS NEEDED
  9. NIASPAN [Concomitant]
     Indication: BLOOD CHOLESTEROL ABNORMAL
     Dosage: 1000 MG, 1X/DAY
  10. VITAMIN B-12 [Concomitant]
     Dosage: UNK, ONCE A DAY
  11. NAPROXEN (ALEVE) [Concomitant]
     Indication: PAIN
     Dosage: UNK
  12. CALCIUM [Concomitant]
  13. MULTI-VITAMINS [Concomitant]
  14. SYNTHROID [Concomitant]
     Indication: THYROID DISORDER
     Dosage: 75 MG, 1X/DAY
     Route: 048
  15. ACTONEL [Concomitant]
     Indication: BONE DEVELOPMENT ABNORMAL
     Dosage: UNK, 1X/DAY
  16. LYRICA [Suspect]
     Indication: FIBROMYALGIA
     Dosage: 50 MG, 2X/DAY
     Dates: start: 20120701
  17. PRILOSEC [Concomitant]
     Dosage: UNK, 1X/DAY
  18. TEMAZEPAM [Concomitant]
     Dosage: UNK
  19. BIOTIN [Concomitant]

REACTIONS (4)
  - DRY MOUTH [None]
  - DRUG EFFECT DECREASED [None]
  - OEDEMA PERIPHERAL [None]
  - OFF LABEL USE [None]
